FAERS Safety Report 10517807 (Version 2)
Quarter: 2014Q4

REPORT INFORMATION
  Report Type: Report from Study
  Country: DE (occurrence: DE)
  Receive Date: 20141015
  Receipt Date: 20141120
  Transmission Date: 20150528
  Serious: Yes (Hospitalization)
  Sender: FDA-Public Use
  Company Number: DE-ABBVIE-14K-062-1294106-00

PATIENT
  Age: 54 Year
  Sex: Female
  Weight: 88 kg

DRUGS (6)
  1. METHOTREXATE [Concomitant]
     Active Substance: METHOTREXATE
     Indication: RHEUMATOID ARTHRITIS
     Route: 048
     Dates: start: 20071119
  2. HUMIRA [Suspect]
     Active Substance: ADALIMUMAB
     Route: 058
     Dates: start: 20140712
  3. KARVEZIDE [Concomitant]
     Active Substance: HYDROCHLOROTHIAZIDE\IRBESARTAN
     Indication: HYPERTENSION
     Dosage: 150/12.5MG
     Route: 048
     Dates: start: 20100920
  4. HUMIRA [Suspect]
     Active Substance: ADALIMUMAB
     Indication: RHEUMATOID ARTHRITIS
     Route: 058
     Dates: start: 20071119, end: 20140623
  5. PREDNISOLONE. [Concomitant]
     Active Substance: PREDNISOLONE
     Indication: RHEUMATOID ARTHRITIS
     Route: 048
     Dates: start: 20100920
  6. BISOPROLOL [Concomitant]
     Active Substance: BISOPROLOL
     Indication: HYPERTENSION
     Dates: start: 20100920

REACTIONS (9)
  - Rheumatoid arthritis [Recovered/Resolved]
  - Polyneuropathy [Recovered/Resolved]
  - Spinal cord compression [Recovered/Resolved]
  - Rheumatoid arthritis [Recovered/Resolved]
  - Blood triglycerides increased [Unknown]
  - Lumbar spinal stenosis [Recovered/Resolved]
  - Hypertension [Not Recovered/Not Resolved]
  - Blood cholesterol increased [Unknown]
  - Osteochondrosis [Recovered/Resolved]

NARRATIVE: CASE EVENT DATE: 201009
